FAERS Safety Report 15579083 (Version 2)
Quarter: 2019Q4

REPORT INFORMATION
  Report Type: Report from Study
  Country: US (occurrence: US)
  Receive Date: 20181102
  Receipt Date: 20191202
  Transmission Date: 20200122
  Serious: Yes (Hospitalization, Disabling, Other)
  Sender: FDA-Public Use
  Company Number: US-SA-2018SA297765

PATIENT
  Age: 72 Year
  Sex: Female

DRUGS (1)
  1. TERIFLUNOMIDE. [Suspect]
     Active Substance: TERIFLUNOMIDE
     Indication: MULTIPLE SCLEROSIS
     Dosage: 14 MG, QD
     Route: 048
     Dates: start: 20171208

REACTIONS (17)
  - Fall [Unknown]
  - Urinary tract infection [Recovered/Resolved]
  - Hospitalisation [Unknown]
  - Head injury [Unknown]
  - Asthenia [Unknown]
  - Joint dislocation [Unknown]
  - Walking aid user [Unknown]
  - Pollakiuria [Recovered/Resolved]
  - Memory impairment [Unknown]
  - Facial bones fracture [Unknown]
  - Swelling face [Unknown]
  - Feeding disorder [Unknown]
  - Gait inability [Unknown]
  - Face injury [Unknown]
  - Loss of control of legs [Unknown]
  - Speech disorder [Unknown]
  - Dysstasia [Unknown]

NARRATIVE: CASE EVENT DATE: 20181007
